FAERS Safety Report 6033467-6 (Version None)
Quarter: 2009Q1

REPORT INFORMATION
  Report Type: 
  Country: None (occurrence: None)
  Receive Date: 20090109
  Receipt Date: 20081230
  Transmission Date: 20090719
  Serious: No
  Sender: FDA-Public Use
  Company Number: US-B.I. PHARMACEUTICALS,INC./RIDGEFIELD-2009-BP-00066BP

PATIENT
  Sex: Female

DRUGS (3)
  1. SPIRIVA [Suspect]
     Dates: start: 20050101
  2. COUMADIN [Concomitant]
     Indication: POOR PERIPHERAL CIRCULATION
  3. PAIN KILLER [Concomitant]
     Indication: BACK PAIN

REACTIONS (2)
  - DRUG INEFFECTIVE [None]
  - DYSPNOEA [None]
